FAERS Safety Report 8129002-9 (Version None)
Quarter: 2012Q1

REPORT INFORMATION
  Report Type: 
  Country: None (occurrence: None)
  Receive Date: 20120210
  Receipt Date: 20120201
  Transmission Date: 20120608
  Serious: Yes (Other)
  Sender: FDA-Public Use
  Company Number: US-ALLERGAN-1201607US

PATIENT
  Age: 52 Year
  Sex: Male

DRUGS (2)
  1. PREDNISOLONE ACETATE [Suspect]
     Indication: INFLAMMATION
     Dosage: UNK
  2. PREDNISOLONE ACETATE [Suspect]
     Dosage: UNK

REACTIONS (2)
  - ENDOPHTHALMITIS [None]
  - CORNEAL INFILTRATES [None]
